FAERS Safety Report 13237123 (Version 1)
Quarter: 2017Q1

REPORT INFORMATION
  Report Type: Spontaneous
  Country: PT (occurrence: PT)
  Receive Date: 20170215
  Receipt Date: 20170215
  Transmission Date: 20170428
  Serious: Yes (Other)
  Sender: FDA-Public Use
  Company Number: PT-MYLANLABS-2017M1008619

PATIENT

DRUGS (6)
  1. ALMOGRAN [Concomitant]
     Active Substance: ALMOTRIPTAN MALATE
     Indication: MIGRAINE
     Dosage: 1 DF, QD
     Route: 048
     Dates: start: 20100308
  2. ATENOLOL. [Interacting]
     Active Substance: ATENOLOL
     Indication: MIGRAINE PROPHYLAXIS
     Dosage: 50 MG, QD
     Route: 048
     Dates: start: 20100531
  3. LASIX [Interacting]
     Active Substance: FUROSEMIDE
     Indication: OEDEMA
     Dosage: 40 MG, QD
     Route: 048
     Dates: start: 20130916
  4. ISOPTIN DC, 120 MG, COMPRIMIDO DE LIBERTA??O PROLONGADA. [Interacting]
     Active Substance: VERAPAMIL HYDROCHLORIDE
     Indication: MIGRAINE PROPHYLAXIS
     Dosage: 120 MG, QD
     Route: 048
     Dates: start: 20141110
  5. DIPLEXIL-R [Concomitant]
     Indication: MIGRAINE PROPHYLAXIS
     Dosage: 1000 MG, QD
     Route: 048
     Dates: start: 20081013
  6. LISINOPRIL. [Suspect]
     Active Substance: LISINOPRIL
     Indication: HYPERTENSION
     Dosage: 10 MG, QD
     Route: 048
     Dates: start: 20150921, end: 201608

REACTIONS (4)
  - Off label use [Unknown]
  - Intentional product use issue [Unknown]
  - Orthostatic hypotension [Recovered/Resolved]
  - Dizziness [Recovered/Resolved]

NARRATIVE: CASE EVENT DATE: 20100531
